FAERS Safety Report 9714033 (Version 2)
Quarter: 2013Q4

REPORT INFORMATION
  Report Type: Spontaneous
  Country: US (occurrence: US)
  Receive Date: 20131126
  Receipt Date: 20131126
  Transmission Date: 20140711
  Serious: No
  Sender: FDA-Public Use
  Company Number: US-GILEAD-2008-0018215

PATIENT
  Sex: Female
  Weight: 75.3 kg

DRUGS (14)
  1. LETAIRIS [Suspect]
     Indication: PULMONARY ARTERIAL HYPERTENSION
     Route: 048
     Dates: start: 20071207
  2. ADVAIR [Concomitant]
     Dosage: AS DIRECTED
  3. ALDACTONE [Concomitant]
     Dosage: AS DIRECTED
     Route: 048
  4. ZYRTEC [Concomitant]
     Dosage: AS DIRECTED
     Route: 048
  5. CELEXA [Concomitant]
     Dosage: AS DIRECTED
     Route: 048
  6. REMERON SOLTAB [Concomitant]
     Dosage: AS DIRECTED
  7. ULTRAM [Concomitant]
     Dosage: AS DIRECTED
     Route: 048
  8. IMITREX [Concomitant]
     Dosage: AS DIRECTED
     Route: 048
  9. VICODIN [Concomitant]
     Dosage: AS DIRECTED
     Route: 048
  10. PERCOCET [Concomitant]
     Dosage: AS DIRECTED
     Route: 048
  11. AMBIEN [Concomitant]
     Route: 048
  12. LUNESTA [Concomitant]
     Dosage: AS DIRECTED
     Route: 048
  13. LEVOXYL [Concomitant]
     Dosage: AS DIRECTED
     Route: 048
  14. FISH OIL [Concomitant]
     Dosage: AS DIRECTED
     Route: 048

REACTIONS (2)
  - Dyspnoea [None]
  - Fluid retention [None]
